FAERS Safety Report 25278770 (Version 1)
Quarter: 2025Q2

REPORT INFORMATION
  Report Type: Report from Study
  Country: ZA (occurrence: ZA)
  Receive Date: 20250507
  Receipt Date: 20250507
  Transmission Date: 20250717
  Serious: Yes (Other)
  Sender: VERITY PHARMACEUTICALS INC.
  Company Number: ZA-VER-202500001

PATIENT
  Sex: Female

DRUGS (3)
  1. TRIPTORELIN PAMOATE [Suspect]
     Active Substance: TRIPTORELIN PAMOATE
     Indication: Ovarian cancer
     Dosage: POWDER AND SOLVENT FOR SUSPENSION FOR INJECTION
     Route: 030
  2. TRIPTORELIN PAMOATE [Suspect]
     Active Substance: TRIPTORELIN PAMOATE
     Indication: Off label use
     Dosage: POWDER AND SOLVENT FOR SUSPENSION FOR INJECTION
     Route: 030
  3. CISPLATIN [Suspect]
     Active Substance: CISPLATIN
     Indication: Ovarian cancer
     Dosage: CREATININE 100 MG/M2 EVERY 3 WEEKS FOR SIX CYCLES
     Route: 065

REACTIONS (9)
  - Anaemia [Unknown]
  - Off label use [Unknown]
  - Renal impairment [Unknown]
  - Nervous system disorder [Unknown]
  - Nausea [Unknown]
  - Vomiting [Unknown]
  - Thrombocytopenia [Unknown]
  - Hot flush [Unknown]
  - Leukopenia [Unknown]
